FAERS Safety Report 16465531 (Version 1)
Quarter: 2019Q2

REPORT INFORMATION
  Report Type: Spontaneous
  Country: US (occurrence: US)
  Receive Date: 20190621
  Receipt Date: 20190621
  Transmission Date: 20190711
  Serious: No
  Sender: FDA-Public Use
  Company Number: US-EGALET US INC-US-2018EGA000782

PATIENT

DRUGS (5)
  1. FOLIC ACID. [Concomitant]
     Active Substance: FOLIC ACID
     Indication: PRODUCT USED FOR UNKNOWN INDICATION
     Dosage: UNK
  2. SPRIX [Suspect]
     Active Substance: KETOROLAC TROMETHAMINE
     Indication: PAIN IN EXTREMITY
     Dosage: ONE SPRAY IN ONE NOSTRIL EVERY 6-8 HOURS PRN
     Route: 045
     Dates: start: 201809, end: 2018
  3. PENNSAID [Suspect]
     Active Substance: DICLOFENAC SODIUM
     Indication: PRODUCT USED FOR UNKNOWN INDICATION
     Dosage: UNK
     Dates: start: 201809, end: 20180925
  4. MELOXICAM. [Concomitant]
     Active Substance: MELOXICAM
     Indication: PRODUCT USED FOR UNKNOWN INDICATION
     Dosage: UNK
  5. MULTIVITAMIN                       /00097801/ [Concomitant]
     Active Substance: VITAMINS
     Indication: PRODUCT USED FOR UNKNOWN INDICATION
     Dosage: UNK

REACTIONS (10)
  - Nasal congestion [Unknown]
  - Erythema [Recovering/Resolving]
  - Peripheral swelling [Recovering/Resolving]
  - Eyelid irritation [Unknown]
  - Skin irritation [Unknown]
  - Nasal discomfort [Recovered/Resolved]
  - Nasal dryness [Unknown]
  - Wrong technique in product usage process [Recovered/Resolved]
  - Pain in extremity [Recovering/Resolving]
  - Throat irritation [Recovered/Resolved]

NARRATIVE: CASE EVENT DATE: 201809
